FAERS Safety Report 18963422 (Version 3)
Quarter: 2023Q1

REPORT INFORMATION
  Report Type: Spontaneous
  Country: US (occurrence: US)
  Receive Date: 20210303
  Receipt Date: 20230103
  Transmission Date: 20230418
  Serious: No
  Sender: FDA-Public Use
  Company Number: US-PFIZER INC-2021155091

PATIENT
  Age: 51 Year
  Sex: Male

DRUGS (2)
  1. INLYTA [Suspect]
     Active Substance: AXITINIB
     Dosage: 5 MG
     Dates: start: 20201110, end: 20210209
  2. INLYTA [Suspect]
     Active Substance: AXITINIB
     Dosage: 5 MG
     Dates: start: 20201113

REACTIONS (6)
  - Product dose omission in error [Unknown]
  - Diarrhoea [Unknown]
  - Cognitive disorder [Unknown]
  - Confusional state [Unknown]
  - Asthenia [Unknown]
  - Balance disorder [Unknown]
